FAERS Safety Report 7811009-X (Version None)
Quarter: 2011Q4

REPORT INFORMATION
  Report Type: 
  Country: None (occurrence: None)
  Receive Date: 20111011
  Receipt Date: 20111005
  Transmission Date: 20120403
  Serious: Yes (Other)
  Sender: FDA-Public Use
  Company Number: USA/USA/11/0021482

PATIENT
  Age: 58 Year
  Sex: Male
  Weight: 68.0396 kg

DRUGS (2)
  1. RANITIDINE [Suspect]
     Indication: GASTRIC PH DECREASED
     Dosage: 150 MG, 1 IN  1 D, ORAL
     Route: 048
     Dates: start: 20111005
  2. CLONIDINE (CLONDIDINE) [Concomitant]

REACTIONS (2)
  - BLOOD PRESSURE INCREASED [None]
  - DIZZINESS [None]
